FAERS Safety Report 14477397 (Version 2)
Quarter: 2018Q3

REPORT INFORMATION
  Report Type: Report from Study
  Country: US (occurrence: US)
  Receive Date: 20180201
  Receipt Date: 20180723
  Transmission Date: 20181010
  Serious: No
  Sender: FDA-Public Use
  Company Number: US-EXELIXIS-CABO-17010521

PATIENT
  Sex: Male

DRUGS (10)
  1. VITAMIN D [Concomitant]
     Active Substance: CHOLECALCIFEROL
  2. MAG OXIDE [Concomitant]
     Active Substance: MAGNESIUM OXIDE
  3. CABOMETYX [Suspect]
     Active Substance: CABOZANTINIB S-MALATE
     Indication: MALIGNANT RESPIRATORY TRACT NEOPLASM
     Dosage: 60 MG, QD
     Route: 048
     Dates: start: 20170913, end: 201710
  4. ATORVASTATIN CALCIUM. [Concomitant]
     Active Substance: ATORVASTATIN CALCIUM
  5. TESSALON [Concomitant]
     Active Substance: BENZONATATE
     Dosage: UNK
  6. ENALAPRIL [Concomitant]
     Active Substance: ENALAPRIL
  7. CABOMETYX [Suspect]
     Active Substance: CABOZANTINIB S-MALATE
     Dosage: 20 MG, QD
     Route: 048
  8. FOLIC ACID. [Concomitant]
     Active Substance: FOLIC ACID
  9. JANUMET [Concomitant]
     Active Substance: METFORMIN HYDROCHLORIDE\SITAGLIPTIN PHOSPHATE
  10. MS CONTIN [Concomitant]
     Active Substance: MORPHINE SULFATE

REACTIONS (10)
  - Adverse drug reaction [Unknown]
  - Throat irritation [Unknown]
  - Tongue ulceration [Unknown]
  - Dyspepsia [Unknown]
  - Stomatitis [Unknown]
  - Fatigue [Unknown]
  - Off label use [Unknown]
  - Myalgia [Unknown]
  - Mouth haemorrhage [Unknown]
  - Nausea [Unknown]

NARRATIVE: CASE EVENT DATE: 2017
